FAERS Safety Report 17211632 (Version 1)
Quarter: 2019Q4

REPORT INFORMATION
  Report Type: Spontaneous
  Country: US (occurrence: US)
  Receive Date: 20191229
  Receipt Date: 20191229
  Transmission Date: 20200122
  Serious: No
  Sender: FDA-Public Use
  Company Number: US-BRISTOL-MYERS SQUIBB COMPANY-BMS-2019-124757

PATIENT
  Sex: Male

DRUGS (1)
  1. ELIQUIS [Suspect]
     Active Substance: APIXABAN
     Indication: ATRIAL FIBRILLATION
     Dosage: DURATION OF THERAPY WAS 4 - 5  YEARS
     Route: 065

REACTIONS (2)
  - Pruritus [Unknown]
  - Contusion [Unknown]

NARRATIVE: CASE EVENT DATE: 2019
